FAERS Safety Report 9996392 (Version 1)
Quarter: 2014Q1

REPORT INFORMATION
  Report Type: Spontaneous
  Country: FR (occurrence: FR)
  Receive Date: 20140311
  Receipt Date: 20140311
  Transmission Date: 20141002
  Serious: Yes (Hospitalization)
  Sender: FDA-Public Use
  Company Number: FR-GLAXOSMITHKLINE-B0974263A

PATIENT
  Age: 76 Year
  Sex: Male

DRUGS (11)
  1. ZOPHREN [Suspect]
     Indication: PRODUCT USED FOR UNKNOWN INDICATION
     Dosage: 8MG TWICE PER DAY
     Route: 048
     Dates: start: 20131205, end: 20131216
  2. BACTRIM FORTE [Suspect]
     Indication: KLEBSIELLA INFECTION
     Route: 048
     Dates: start: 20131202, end: 20131212
  3. TRIFLUCAN [Suspect]
     Indication: PRODUCT USED FOR UNKNOWN INDICATION
     Dosage: 50MGML PER DAY
     Route: 048
     Dates: start: 20131210, end: 20131216
  4. ALPRAZOLAM [Suspect]
     Indication: PRODUCT USED FOR UNKNOWN INDICATION
     Dosage: .25MG TWICE PER DAY
     Route: 048
     Dates: start: 20131129, end: 20131222
  5. AMLODIPINE [Concomitant]
     Indication: PRODUCT USED FOR UNKNOWN INDICATION
     Dosage: 5MG PER DAY
     Route: 048
  6. KARDEGIC [Concomitant]
     Indication: PRODUCT USED FOR UNKNOWN INDICATION
     Dosage: 75MG PER DAY
     Route: 048
  7. TRIATEC [Concomitant]
     Indication: PRODUCT USED FOR UNKNOWN INDICATION
     Dosage: 5MG PER DAY
     Route: 048
  8. EUPANTOL [Concomitant]
     Indication: PRODUCT USED FOR UNKNOWN INDICATION
     Dosage: 40MG PER DAY
     Route: 048
  9. LOVENOX [Concomitant]
     Indication: PRODUCT USED FOR UNKNOWN INDICATION
     Dosage: 4000IUAX PER DAY
     Route: 058
     Dates: end: 20140105
  10. LEVEMIR [Concomitant]
     Indication: PRODUCT USED FOR UNKNOWN INDICATION
     Route: 058
  11. NOVORAPID [Concomitant]
     Indication: PRODUCT USED FOR UNKNOWN INDICATION
     Route: 058

REACTIONS (6)
  - Drug eruption [Recovered/Resolved]
  - Skin ulcer [Recovered/Resolved]
  - Dermatitis bullous [Recovered/Resolved]
  - Pruritus [Recovered/Resolved]
  - Inflammation [Recovered/Resolved]
  - Off label use [Unknown]
